FAERS Safety Report 7437478-5 (Version None)
Quarter: 2011Q2

REPORT INFORMATION
  Report Type: 
  Country: None (occurrence: None)
  Receive Date: 20110426
  Receipt Date: 20110414
  Transmission Date: 20111010
  Serious: Yes (Other)
  Sender: FDA-Public Use
  Company Number: PHHY2011CA32192

PATIENT
  Sex: Female

DRUGS (8)
  1. ACLASTA [Suspect]
     Indication: OSTEOPOROSIS
     Dosage: 5 MG, UNK
     Route: 042
     Dates: start: 20081002
  2. PRILOSEC [Concomitant]
  3. ACLASTA [Suspect]
     Dosage: 5 MG, UNK
     Route: 042
     Dates: start: 20100406, end: 20110328
  4. CALCIUM W/VITAMIN D NOS [Concomitant]
  5. ACLASTA [Suspect]
     Dosage: 5 MG, UNK
     Route: 042
     Dates: start: 20090331
  6. VITAMIN D [Concomitant]
     Dosage: 1000 IU, UNK
  7. ASPIRIN [Concomitant]
  8. CALCIUM CARBONATE [Concomitant]
     Dosage: 1500 MG, UNK

REACTIONS (2)
  - FALL [None]
  - WRIST FRACTURE [None]
